FAERS Safety Report 25737504 (Version 1)
Quarter: 2025Q3

REPORT INFORMATION
  Report Type: Spontaneous
  Country: US (occurrence: US)
  Receive Date: 20250828
  Receipt Date: 20250828
  Transmission Date: 20251020
  Serious: No
  Sender: SANDOZ
  Company Number: US-SANDOZ-SDZ2025US060446

PATIENT
  Sex: Female

DRUGS (1)
  1. RECLAST [Suspect]
     Active Substance: ZOLEDRONIC ACID
     Indication: Product used for unknown indication
     Route: 065
     Dates: start: 20250806

REACTIONS (13)
  - Loss of personal independence in daily activities [Unknown]
  - C-reactive protein increased [Unknown]
  - Pain in jaw [Unknown]
  - Gingival pain [Unknown]
  - Toothache [Unknown]
  - Oropharyngeal pain [Unknown]
  - Musculoskeletal chest pain [Unknown]
  - Vitamin D increased [Unknown]
  - Back pain [Unknown]
  - Headache [Not Recovered/Not Resolved]
  - Arthralgia [Unknown]
  - Pain [Unknown]
  - Dyspnoea [Unknown]

NARRATIVE: CASE EVENT DATE: 20250801
